FAERS Safety Report 14261169 (Version 2)
Quarter: 2017Q4

REPORT INFORMATION
  Report Type: Report from Study
  Country: NL (occurrence: NL)
  Receive Date: 20171207
  Receipt Date: 20171222
  Transmission Date: 20180321
  Serious: Yes (Death, Hospitalization)
  Sender: FDA-Public Use
  Company Number: NL-BAXTER-2017BAX041093

PATIENT
  Age: 7 Decade
  Sex: Female
  Weight: 48 kg

DRUGS (14)
  1. RAPAMUNE [Suspect]
     Active Substance: SIROLIMUS
     Indication: CHONDROSARCOMA
     Dosage: REGIMEN 1
     Route: 048
     Dates: start: 20170905, end: 20170906
  2. DICLOFENAC [Concomitant]
     Active Substance: DICLOFENAC
     Indication: TUMOUR PAIN
     Route: 065
     Dates: start: 20170901, end: 20171010
  3. ENDOXAN OMHULDE TABLET, OMHULDE TABLETTEN 50 MG [Suspect]
     Active Substance: CYCLOPHOSPHAMIDE
     Dosage: REGIMEN 2
     Route: 048
     Dates: start: 20170914, end: 20170925
  4. METOPROLOL. [Concomitant]
     Active Substance: METOPROLOL
     Indication: HYPERTENSION
     Route: 065
     Dates: start: 20170731
  5. PANTOPRAZOL [Concomitant]
     Active Substance: PANTOPRAZOLE SODIUM
     Indication: PROPHYLAXIS
     Route: 065
     Dates: start: 20170731
  6. PARACETAMOL [Concomitant]
     Active Substance: ACETAMINOPHEN
     Indication: TUMOUR PAIN
     Route: 065
     Dates: start: 20170731
  7. ENDOXAN OMHULDE TABLET, OMHULDE TABLETTEN 50 MG [Suspect]
     Active Substance: CYCLOPHOSPHAMIDE
     Dosage: REGIMEN 3
     Route: 048
     Dates: start: 20171002, end: 20171008
  8. DESLORATADINE. [Concomitant]
     Active Substance: DESLORATADINE
     Indication: HYPERSENSITIVITY
     Route: 065
     Dates: start: 20170731, end: 20171010
  9. METOCLOPRAMIDE. [Concomitant]
     Active Substance: METOCLOPRAMIDE
     Indication: VOMITING
  10. ENDOXAN OMHULDE TABLET, OMHULDE TABLETTEN 50 MG [Suspect]
     Active Substance: CYCLOPHOSPHAMIDE
     Indication: CHONDROSARCOMA
     Dosage: REGIMEN 1
     Route: 048
     Dates: start: 20170905, end: 20170906
  11. RAPAMUNE [Suspect]
     Active Substance: SIROLIMUS
     Dosage: REGIMEN 2
     Route: 048
     Dates: start: 20171010, end: 20171010
  12. NADROPARIN [Concomitant]
     Active Substance: NADROPARIN
     Indication: EMBOLISM
     Route: 065
     Dates: start: 20170907
  13. METOCLOPRAMIDE. [Concomitant]
     Active Substance: METOCLOPRAMIDE
     Indication: NAUSEA
     Route: 065
     Dates: start: 20170906, end: 20171010
  14. PHENTANYL [Concomitant]
     Active Substance: FENTANYL
     Indication: TUMOUR PAIN
     Route: 065
     Dates: start: 20170810

REACTIONS (3)
  - Febrile neutropenia [Unknown]
  - Death [Fatal]
  - Pneumonia [Unknown]

NARRATIVE: CASE EVENT DATE: 20171009
